FAERS Safety Report 4380616-1 (Version None)
Quarter: 2004Q2

REPORT INFORMATION
  Report Type: 
  Country: None (occurrence: None)
  Receive Date: 20040618
  Receipt Date: 20040614
  Transmission Date: 20050107
  Serious: Yes (Hospitalization)
  Sender: FDA-Public Use
  Company Number: FR-GLAXOSMITHKLINE-B0335563A

PATIENT
  Age: 94 Year
  Sex: Female

DRUGS (6)
  1. AUGMENTIN '125' [Suspect]
     Indication: BRONCHITIS
     Route: 048
     Dates: start: 20040209, end: 20040213
  2. SOLUPRED [Suspect]
     Indication: BRONCHITIS
     Route: 048
     Dates: start: 20040209, end: 20040213
  3. RISPERDAL [Suspect]
     Indication: AGITATION
     Route: 048
     Dates: start: 20040209, end: 20040213
  4. LASILIX [Concomitant]
     Dosage: 40MG PER DAY
     Route: 048
     Dates: end: 20040213
  5. PREVISCAN [Concomitant]
     Dosage: .25UNIT PER DAY
     Route: 048
     Dates: end: 20040302
  6. DIGOXIN [Concomitant]
     Dosage: 1UNIT PER DAY
     Route: 048
     Dates: end: 20040213

REACTIONS (2)
  - CONFUSIONAL STATE [None]
  - DISORIENTATION [None]
